FAERS Safety Report 10885701 (Version 1)
Quarter: 2015Q1

REPORT INFORMATION
  Report Type: Spontaneous
  Country: CA (occurrence: CA)
  Receive Date: 20150304
  Receipt Date: 20150304
  Transmission Date: 20150721
  Serious: Yes (Hospitalization)
  Sender: FDA-Public Use
  Company Number: CA-ACTAVIS-2015-03904

PATIENT
  Age: 58 Year
  Sex: Female
  Weight: 50 kg

DRUGS (1)
  1. CITALOPRAM [Suspect]
     Active Substance: CITALOPRAM HYDROBROMIDE
     Indication: PRODUCT USED FOR UNKNOWN INDICATION
     Dosage: 1 DF, DAILY
     Route: 048

REACTIONS (7)
  - Amnesia [Unknown]
  - Vomiting [Unknown]
  - Photophobia [Unknown]
  - Headache [Unknown]
  - Confusional state [Unknown]
  - Nausea [Unknown]
  - Cerebral vasoconstriction [Unknown]
